FAERS Safety Report 6170888-5 (Version None)
Quarter: 2009Q2

REPORT INFORMATION
  Report Type: 
  Country: None (occurrence: None)
  Receive Date: 20090427
  Receipt Date: 20090415
  Transmission Date: 20091009
  Serious: Yes (Hospitalization)
  Sender: FDA-Public Use
  Company Number: 2008-175565-NL

PATIENT
  Age: 32 Year
  Sex: Female

DRUGS (1)
  1. MARVELON [Suspect]
     Indication: CONTRACEPTION
     Dosage: DF ORAL
     Route: 048
     Dates: start: 20040101, end: 20080229

REACTIONS (2)
  - ARTERIAL THROMBOSIS LIMB [None]
  - MYOFASCITIS [None]
